FAERS Safety Report 19208861 (Version 3)
Quarter: 2021Q2

REPORT INFORMATION
  Report Type: Report from Study
  Country: US (occurrence: US)
  Receive Date: 20210503
  Receipt Date: 20210524
  Transmission Date: 20210717
  Serious: Yes (Hospitalization, Other)
  Sender: FDA-Public Use
  Company Number: US-BAUSCH-BL-2021-015097

PATIENT
  Age: 70 Year
  Sex: Male
  Weight: 83.99 kg

DRUGS (6)
  1. XIFAXAN [Suspect]
     Active Substance: RIFAXIMIN
     Indication: HEPATIC CIRRHOSIS
     Route: 048
     Dates: start: 202104, end: 2021
  2. LASIX [Concomitant]
     Active Substance: FUROSEMIDE
     Indication: PRODUCT USED FOR UNKNOWN INDICATION
  3. XIFAXAN [Suspect]
     Active Substance: RIFAXIMIN
     Indication: HEPATIC ENCEPHALOPATHY
     Dosage: STARTED ABOUT 5 TO 6 YEARS PRIOR TO 17/MAY/2021
     Route: 048
     Dates: end: 20210321
  4. SPIRONOLACTONE. [Concomitant]
     Active Substance: SPIRONOLACTONE
     Indication: PRODUCT USED FOR UNKNOWN INDICATION
  5. XIFAXAN [Suspect]
     Active Substance: RIFAXIMIN
     Dosage: REDUCED DOSE (UNKNOWN)
     Route: 048
     Dates: start: 2021, end: 2021
  6. XIFAXAN [Suspect]
     Active Substance: RIFAXIMIN
     Dosage: TOOK ONE TABLET IN THE MORNING AND 0.5 TABLET AT NIGHT
     Route: 048
     Dates: start: 20210516

REACTIONS (4)
  - Sepsis [Unknown]
  - Ascites [Not Recovered/Not Resolved]
  - Intentional product use issue [Unknown]
  - Therapy interrupted [Unknown]

NARRATIVE: CASE EVENT DATE: 2021
